FAERS Safety Report 9550521 (Version 5)
Quarter: 2015Q4

REPORT INFORMATION
  Report Type: Report from Study
  Country: US (occurrence: US)
  Receive Date: 20130924
  Receipt Date: 20151020
  Transmission Date: 20160305
  Serious: Yes (Hospitalization, Other)
  Sender: FDA-Public Use
  Company Number: US-SANOFI-AVENTIS-2013SA028626

PATIENT
  Age: 37 Year
  Sex: Female

DRUGS (3)
  1. AUBAGIO [Suspect]
     Active Substance: TERIFLUNOMIDE
     Indication: MULTIPLE SCLEROSIS
     Route: 048
     Dates: start: 20130103, end: 201404
  2. AUBAGIO [Suspect]
     Active Substance: TERIFLUNOMIDE
     Indication: MULTIPLE SCLEROSIS
     Route: 048
     Dates: start: 201404
  3. CLONAZEPAM. [Concomitant]
     Active Substance: CLONAZEPAM

REACTIONS (21)
  - Visual impairment [Recovered/Resolved]
  - Neck pain [Recovering/Resolving]
  - Neuropathy peripheral [Unknown]
  - Pain in extremity [Unknown]
  - Pain [Recovered/Resolved]
  - Nausea [Recovered/Resolved]
  - Drug dose omission [Unknown]
  - Spinal disorder [Recovering/Resolving]
  - Fatigue [Recovered/Resolved]
  - Discomfort [Recovered/Resolved]
  - Multiple sclerosis relapse [Recovering/Resolving]
  - Tremor [Recovering/Resolving]
  - Abasia [Recovered/Resolved]
  - Spinal operation [Unknown]
  - Multiple sclerosis relapse [Unknown]
  - Hypothyroidism [Unknown]
  - Back pain [Unknown]
  - Rash [Not Recovered/Not Resolved]
  - Head discomfort [Recovering/Resolving]
  - Muscle spasms [Recovering/Resolving]
  - Alopecia [Not Recovered/Not Resolved]

NARRATIVE: CASE EVENT DATE: 2013
